FAERS Safety Report 23461203 (Version 3)
Quarter: 2024Q1

REPORT INFORMATION
  Report Type: Spontaneous
  Country: BR (occurrence: BR)
  Receive Date: 20240131
  Receipt Date: 20240208
  Transmission Date: 20240409
  Serious: Yes (Other)
  Sender: FDA-Public Use
  Company Number: BR-ORGANON-O2310BRA001513

PATIENT
  Age: 17 Year
  Sex: Female
  Weight: 58 kg

DRUGS (3)
  1. ETONOGESTREL [Suspect]
     Active Substance: ETONOGESTREL
     Indication: Menstrual cycle management
     Dosage: 1 IMPLANT IN THE ARM
     Route: 059
     Dates: start: 202004, end: 202310
  2. ETONOGESTREL [Suspect]
     Active Substance: ETONOGESTREL
     Indication: Dysmenorrhoea
  3. ETONOGESTREL [Suspect]
     Active Substance: ETONOGESTREL
     Indication: Contraception

REACTIONS (13)
  - Surgery [Recovering/Resolving]
  - Device embolisation [Recovered/Resolved]
  - Blindness transient [Unknown]
  - Amenorrhoea [Recovered/Resolved]
  - Dizziness [Unknown]
  - Back pain [Unknown]
  - Chest discomfort [Unknown]
  - Complication associated with device [Recovered/Resolved]
  - Vertigo [Unknown]
  - Palpitations [Unknown]
  - Product use in unapproved indication [Unknown]
  - Incorrect product administration duration [Unknown]
  - Product use issue [Unknown]

NARRATIVE: CASE EVENT DATE: 20200101
